FAERS Safety Report 5327834-3 (Version None)
Quarter: 2007Q2

REPORT INFORMATION
  Report Type: 
  Country: None (occurrence: None)
  Receive Date: 20070517
  Receipt Date: 20070509
  Transmission Date: 20071010
  Serious: Yes (Hospitalization)
  Sender: FDA-Public Use
  Company Number: FR-ASTRAZENECA-2007CG00719

PATIENT
  Age: 56 Year
  Sex: Male

DRUGS (5)
  1. SYMBICORT [Suspect]
     Indication: ASTHMA
     Route: 055
     Dates: start: 20061001, end: 20061121
  2. KENACORT [Interacting]
     Indication: ASTHMA
     Route: 030
     Dates: start: 20061017, end: 20061017
  3. SERETIDE [Interacting]
     Indication: ASTHMA
     Route: 055
  4. KALETRA [Interacting]
     Indication: HIV INFECTION
     Route: 048
     Dates: start: 20060530
  5. TRUVADA [Concomitant]
     Indication: HIV INFECTION
     Dates: start: 20060630

REACTIONS (2)
  - CUSHING'S SYNDROME [None]
  - DRUG INTERACTION [None]
